FAERS Safety Report 6245302-1 (Version None)
Quarter: 2009Q2

REPORT INFORMATION
  Report Type: 
  Country: None (occurrence: None)
  Receive Date: 20090625
  Receipt Date: 20090616
  Transmission Date: 20091009
  Serious: Yes (Other)
  Sender: FDA-Public Use
  Company Number: US-ABBOTT-09P-163-0580182-00

PATIENT
  Age: 42 Year
  Sex: Female

DRUGS (1)
  1. LUPRON DEPOT [Suspect]
     Indication: IN VITRO FERTILISATION
     Dosage: TAKEN FOR 5 CYCLES

REACTIONS (4)
  - ABORTION SPONTANEOUS [None]
  - AMNIOCENTESIS ABNORMAL [None]
  - CERVICAL INCOMPETENCE [None]
  - DRUG INEFFECTIVE [None]
